FAERS Safety Report 23037356 (Version 1)
Quarter: 2023Q4

REPORT INFORMATION
  Report Type: Report from Study
  Country: IT (occurrence: IT)
  Receive Date: 20231006
  Receipt Date: 20231006
  Transmission Date: 20240110
  Serious: Yes (Life-Threatening, Other)
  Sender: FDA-Public Use
  Company Number: IT-GENMAB-2023-01808

PATIENT
  Sex: Female
  Weight: 50 kg

DRUGS (6)
  1. EPCORITAMAB [Suspect]
     Active Substance: EPCORITAMAB
     Indication: Diffuse large B-cell lymphoma
     Dosage: 0.8 MG
     Route: 058
     Dates: start: 20231002, end: 20231002
  2. ENOXAPARIN SODIUM [Concomitant]
     Active Substance: ENOXAPARIN SODIUM
     Indication: Deep vein thrombosis
     Dosage: 4000 IU
     Dates: start: 202309
  3. TINIDAZOLE [Concomitant]
     Active Substance: TINIDAZOLE
     Indication: Autoimmune thyroiditis
     Dosage: 30 MG
     Dates: start: 2022
  4. SULFAMETHOXAZOLE\TRIMETHOPRIM [Concomitant]
     Active Substance: SULFAMETHOXAZOLE\TRIMETHOPRIM
     Indication: Antifungal prophylaxis
     Dosage: 860 MG
     Dates: start: 2021
  5. ACYCLOVIR SODIUM [Concomitant]
     Active Substance: ACYCLOVIR SODIUM
     Indication: Antiviral prophylaxis
     Dosage: 400 MG
     Dates: start: 2021
  6. SIG [Concomitant]
     Indication: Hypertension
     Dosage: 1.25 MG
     Dates: start: 1998

REACTIONS (1)
  - Immune effector cell-associated neurotoxicity syndrome [Recovered/Resolved]

NARRATIVE: CASE EVENT DATE: 20231002
